FAERS Safety Report 4969189-X (Version None)
Quarter: 2006Q2

REPORT INFORMATION
  Report Type: 
  Country: None (occurrence: None)
  Receive Date: 20060411
  Receipt Date: 20060109
  Transmission Date: 20061013
  Serious: No
  Sender: FDA-Public Use
  Company Number: US-BRISTOL-MYERS SQUIBB COMPANY-13240338

PATIENT
  Age: 11 Month
  Sex: Female

DRUGS (2)
  1. PARAPLATIN [Suspect]
     Indication: NEUROBLASTOMA
     Route: 042
     Dates: start: 20060106, end: 20060106
  2. ZOFRAN [Concomitant]
     Indication: PREMEDICATION
     Dates: start: 20060106, end: 20060106

REACTIONS (1)
  - DRUG ADMINISTRATION ERROR [None]
